FAERS Safety Report 11855456 (Version 1)
Quarter: 2015Q4

REPORT INFORMATION
  Report Type: Spontaneous
  Country: US (occurrence: None)
  Receive Date: 20151218
  Receipt Date: 20151218
  Transmission Date: 20160305
  Serious: Yes (Other)
  Sender: FDA-Public Use
  Company Number: None

PATIENT
  Age: 38 Year
  Sex: Female
  Weight: 89.81 kg

DRUGS (6)
  1. DULOXETINE 60MG BRACKENBRIDGE [Suspect]
     Active Substance: DULOXETINE
     Indication: DEPRESSION
     Route: 048
     Dates: start: 20151019, end: 20151117
  2. DULOXETINE 60MG BRACKENBRIDGE [Suspect]
     Active Substance: DULOXETINE
     Indication: NEURALGIA
     Route: 048
     Dates: start: 20151019, end: 20151117
  3. DULOXETINE 60MG SUN [Suspect]
     Active Substance: DULOXETINE
     Indication: ANXIETY
     Route: 048
     Dates: start: 20151118, end: 20151217
  4. DULOXETINE 60MG SUN [Suspect]
     Active Substance: DULOXETINE
     Indication: DEPRESSION
     Route: 048
     Dates: start: 20151118, end: 20151217
  5. DULOXETINE 60MG BRACKENBRIDGE [Suspect]
     Active Substance: DULOXETINE
     Indication: ANXIETY
     Route: 048
     Dates: start: 20151019, end: 20151117
  6. DULOXETINE 60MG SUN [Suspect]
     Active Substance: DULOXETINE
     Indication: NEURALGIA
     Route: 048
     Dates: start: 20151118, end: 20151217

REACTIONS (4)
  - Product substitution issue [None]
  - Neuralgia [None]
  - Affect lability [None]
  - Mood altered [None]

NARRATIVE: CASE EVENT DATE: 20151019
